FAERS Safety Report 17900528 (Version 1)
Quarter: 2020Q2

REPORT INFORMATION
  Report Type: Spontaneous
  Country: US (occurrence: US)
  Receive Date: 20200615
  Receipt Date: 20200615
  Transmission Date: 20200714
  Serious: Yes (Death)
  Sender: FDA-Public Use
  Company Number: None

PATIENT
  Age: 55 Year
  Sex: Male
  Weight: 95.4 kg

DRUGS (12)
  1. HUMALOG [Concomitant]
     Active Substance: INSULIN LISPRO
     Dates: start: 20200528, end: 20200528
  2. ZOSYN [Concomitant]
     Active Substance: PIPERACILLIN SODIUM\TAZOBACTAM SODIUM
     Dates: end: 20200528
  3. REMDESIVIR. [Suspect]
     Active Substance: REMDESIVIR
     Indication: COVID-19
     Dosage: ?          OTHER FREQUENCY:ONCE;?
     Route: 041
  4. ATACARIUM [Concomitant]
     Dates: start: 20200526
  5. METOPROLOL. [Concomitant]
     Active Substance: METOPROLOL
     Dates: start: 20200518
  6. LANTUS [Concomitant]
     Active Substance: INSULIN GLARGINE
     Dates: end: 20200528
  7. ACTEMRA [Concomitant]
     Active Substance: TOCILIZUMAB
     Dates: start: 20200515, end: 20200524
  8. MORPHINE [Concomitant]
     Active Substance: MORPHINE
     Dates: end: 20200528
  9. NOREPINEPHRINE. [Concomitant]
     Active Substance: NOREPINEPHRINE
     Dates: start: 20200520, end: 20200528
  10. SODIUM BICARBNONATE [Concomitant]
     Dates: start: 20200528, end: 20200528
  11. CATHFLO ACTIVASE [Concomitant]
     Active Substance: ALTEPLASE
     Dates: start: 20200526, end: 20200528
  12. MORPHINE [Concomitant]
     Active Substance: MORPHINE
     Dates: start: 20200524, end: 20200527

REACTIONS (1)
  - Death [None]

NARRATIVE: CASE EVENT DATE: 20200528
